FAERS Safety Report 13298406 (Version 1)
Quarter: 2017Q1

REPORT INFORMATION
  Report Type: Spontaneous
  Country: US (occurrence: US)
  Receive Date: 20170306
  Receipt Date: 20170306
  Transmission Date: 20170428
  Serious: No
  Sender: FDA-Public Use
  Company Number: US-BAYER-2017-041971

PATIENT
  Sex: Male

DRUGS (2)
  1. AMICAR [Concomitant]
     Active Substance: AMINOCAPROIC ACID
  2. KOGENATE FS [Suspect]
     Active Substance: ANTIHEMOPHILIC FACTOR, HUMAN RECOMBINANT
     Dosage: 2500 U, TIW
     Route: 042
     Dates: start: 20170208

REACTIONS (1)
  - Epistaxis [None]
